FAERS Safety Report 23914784 (Version 2)
Quarter: 2024Q3

REPORT INFORMATION
  Report Type: Spontaneous
  Country: US (occurrence: US)
  Receive Date: 20240529
  Receipt Date: 20240722
  Transmission Date: 20241016
  Serious: Yes (Other)
  Sender: PFIZER
  Company Number: US-PFIZER INC-202400179478

PATIENT
  Age: 66 Year
  Sex: Male
  Weight: 72.562 kg

DRUGS (1)
  1. PREMARIN [Suspect]
     Active Substance: ESTROGENS, CONJUGATED
     Dosage: UNK
     Route: 060

REACTIONS (6)
  - Erectile dysfunction [Unknown]
  - Sexual dysfunction [Unknown]
  - Dizziness [Recovered/Resolved]
  - Malaise [Unknown]
  - Headache [Unknown]
  - Incorrect route of product administration [Unknown]

NARRATIVE: CASE EVENT DATE: 20240527
